FAERS Safety Report 8830512 (Version 1)
Quarter: 2012Q4

REPORT INFORMATION
  Report Type: 
  Country: US (occurrence: US)
  Receive Date: 20121009
  Receipt Date: 20121009
  Transmission Date: 20130627
  Serious: Yes (Other)
  Sender: FDA-Public Use
  Company Number: US-PFIZER INC-2012213822

PATIENT
  Age: 45 Year
  Sex: Female
  Weight: 62.59 kg

DRUGS (6)
  1. PRISTIQ [Suspect]
     Indication: DEPRESSION
     Dosage: 50 mg, 2x/day
     Route: 048
     Dates: start: 201208, end: 201208
  2. PRISTIQ [Suspect]
     Dosage: 50 mg, UNK
  3. EFFEXOR [Suspect]
     Indication: DEPRESSION
     Dosage: 75 mg, 2x/day
     Dates: start: 2012, end: 2012
  4. EFFEXOR [Suspect]
     Indication: ANXIETY
     Dosage: 225 mg, UNK
  5. MORPHINE SULFATE [Concomitant]
     Indication: BACK PAIN
     Dosage: 60 mg, 2x/day
  6. OXYCODONE [Concomitant]
     Indication: BACK PAIN
     Dosage: 325 mg, as needed

REACTIONS (5)
  - Pneumonia [Recovered/Resolved]
  - Nasopharyngitis [Not Recovered/Not Resolved]
  - Agitation [Unknown]
  - Anxiety [Recovering/Resolving]
  - Nausea [Recovered/Resolved]
